FAERS Safety Report 17114478 (Version 1)
Quarter: 2019Q4

REPORT INFORMATION
  Report Type: Spontaneous
  Country: FR (occurrence: FR)
  Receive Date: 20191205
  Receipt Date: 20191205
  Transmission Date: 20200122
  Serious: Yes (Hospitalization)
  Sender: FDA-Public Use
  Company Number: FR-TEVA-2019-FR-1146479

PATIENT
  Age: 80 Year
  Sex: Female

DRUGS (4)
  1. LEVOTHYROX 100 MICROGRAMMES, COMPRIME SECABLE [Concomitant]
     Active Substance: LEVOTHYROXINE
     Indication: WRONG PRODUCT ADMINISTERED
     Dosage: 1 DOSAGE FORM IN TOTAL
     Route: 048
     Dates: start: 20191025, end: 20191025
  2. FUROSEMIDE. [Suspect]
     Active Substance: FUROSEMIDE
     Indication: WRONG PRODUCT ADMINISTERED
     Dosage: 40MG IN TOTAL
     Route: 048
     Dates: start: 20191025, end: 20191025
  3. BISOPROLOL (HEMIFUMARATE DE) [Suspect]
     Active Substance: BISOPROLOL FUMARATE
     Indication: WRONG PRODUCT ADMINISTERED
     Dosage: 5MG IN TOTAL
     Route: 048
     Dates: start: 20191025, end: 20191025
  4. LANSOPRAZOLE. [Concomitant]
     Active Substance: LANSOPRAZOLE
     Indication: WRONG PRODUCT ADMINISTERED
     Dosage: 15MG IN TOTAL
     Route: 048
     Dates: start: 20191025, end: 20191025

REACTIONS (3)
  - Wrong drug [Recovered/Resolved]
  - Atrioventricular block [Recovered/Resolved]
  - Bradycardia [Recovered/Resolved]

NARRATIVE: CASE EVENT DATE: 20191025
